FAERS Safety Report 17850797 (Version 1)
Quarter: 2020Q2

REPORT INFORMATION
  Report Type: Spontaneous
  Country: US (occurrence: US)
  Receive Date: 20200602
  Receipt Date: 20200602
  Transmission Date: 20200714
  Serious: Yes (Disabling)
  Sender: FDA-Public Use
  Company Number: None

PATIENT
  Age: 64 Year
  Sex: Female

DRUGS (8)
  1. GABAPENTIN. [Concomitant]
     Active Substance: GABAPENTIN
  2. METHOCARBAMOL. [Concomitant]
     Active Substance: METHOCARBAMOL
  3. GADOLINIUM [Suspect]
     Active Substance: GADOLINIUM
     Indication: IMAGING PROCEDURE
     Dates: start: 20160817, end: 20170817
  4. METFORMIN [Concomitant]
     Active Substance: METFORMIN HYDROCHLORIDE
  5. AMITRIPTYLINE [Concomitant]
     Active Substance: AMITRIPTYLINE
  6. LISINOPRIL. [Concomitant]
     Active Substance: LISINOPRIL
  7. ATORVASTATIN [Concomitant]
     Active Substance: ATORVASTATIN
  8. METFORMIN [Concomitant]
     Active Substance: METFORMIN HYDROCHLORIDE

REACTIONS (19)
  - Burning sensation [None]
  - Skin weeping [None]
  - Bone pain [None]
  - Muscle spasms [None]
  - Muscle tightness [None]
  - Rash [None]
  - Pain in extremity [None]
  - Sensory disturbance [None]
  - Contrast media deposition [None]
  - Skin discolouration [None]
  - Lip discolouration [None]
  - Paraesthesia [None]
  - Skin oedema [None]
  - Skin lesion [None]
  - Muscular weakness [None]
  - Swelling [None]
  - Skin hypertrophy [None]
  - Arthralgia [None]
  - Skin tightness [None]

NARRATIVE: CASE EVENT DATE: 20180202
